FAERS Safety Report 24874822 (Version 3)
Quarter: 2025Q3

REPORT INFORMATION
  Report Type: Report from Study
  Country: JP (occurrence: JP)
  Receive Date: 20250122
  Receipt Date: 20250809
  Transmission Date: 20251020
  Serious: Yes (Hospitalization, Other)
  Sender: ALEXION PHARMACEUTICALS
  Company Number: JP-ASTRAZENECA-202501JPN010641JP

PATIENT
  Age: 80 Year
  Sex: Male

DRUGS (8)
  1. ULTOMIRIS [Suspect]
     Active Substance: RAVULIZUMAB-CWVZ
     Indication: Myasthenia gravis
     Dates: start: 20221027, end: 20221027
  2. ULTOMIRIS [Suspect]
     Active Substance: RAVULIZUMAB-CWVZ
     Dosage: 3300 MILLIGRAM, Q8W
  3. ULTOMIRIS [Suspect]
     Active Substance: RAVULIZUMAB-CWVZ
     Dosage: 3300 MILLIGRAM, Q8W
     Dates: start: 20250123
  4. PREDNISOLONE [Concomitant]
     Active Substance: PREDNISOLONE
     Route: 065
  5. VONOPRAZAN FUMARATE [Concomitant]
     Active Substance: VONOPRAZAN FUMARATE
     Route: 065
  6. PROGRAF [Concomitant]
     Active Substance: TACROLIMUS
     Route: 065
  7. ALENDRONATE [Concomitant]
     Active Substance: ALENDRONATE SODIUM
     Route: 065
  8. MESTINON [Concomitant]
     Active Substance: PYRIDOSTIGMINE BROMIDE
     Dosage: 1 DOSAGE FORM (120 MG), BID
     Route: 065

REACTIONS (2)
  - Pneumonia [Recovered/Resolved]
  - Therapeutic product effect delayed [Unknown]

NARRATIVE: CASE EVENT DATE: 20250109
